FAERS Safety Report 16764239 (Version 1)
Quarter: 2019Q3

REPORT INFORMATION
  Report Type: Spontaneous
  Country: US (occurrence: US)
  Receive Date: 20190712
  Receipt Date: 20190712
  Transmission Date: 20191005
  Serious: Yes (Death)
  Sender: FDA-Public Use
  Company Number: None

PATIENT

DRUGS (1)
  1. LUNESTA [Suspect]
     Active Substance: ESZOPICLONE
     Dates: start: 20060822, end: 20190116

REACTIONS (2)
  - Product complaint [None]
  - Completed suicide [None]

NARRATIVE: CASE EVENT DATE: 20190117
